FAERS Safety Report 23190954 (Version 3)
Quarter: 2024Q1

REPORT INFORMATION
  Report Type: Spontaneous
  Country: US (occurrence: US)
  Receive Date: 20231116
  Receipt Date: 20240110
  Transmission Date: 20240410
  Serious: No
  Sender: FDA-Public Use
  Company Number: US-PFIZER INC-202300360304

PATIENT
  Age: 15 Year
  Sex: Male
  Weight: 58.957 kg

DRUGS (4)
  1. GENOTROPIN [Suspect]
     Active Substance: SOMATROPIN
     Indication: Growth hormone deficiency
     Dosage: UNK, ALTERNATE DAY(HE SUPPOSE TO TAKE 1.2 ONE DAY AND THEN 1.4 THE NEXT DAY SO, IT ALTERNATES)
  2. GENOTROPIN [Suspect]
     Active Substance: SOMATROPIN
     Dosage: 1.2 MG, ALTERNATE DAY (ALTERNATES 1.2MG AND 1.4MG)
  3. GENOTROPIN [Suspect]
     Active Substance: SOMATROPIN
     Dosage: 1.4 MG, ALTERNATE DAY (ALTERNATES 1.2MG AND 1.4MG)
  4. SYNTHROID [Concomitant]
     Active Substance: LEVOTHYROXINE SODIUM
     Dosage: 88 MG, DAILY (ONCE IN THE MORNING)

REACTIONS (2)
  - Expired device used [Unknown]
  - Product dose omission issue [Unknown]
